FAERS Safety Report 8937193 (Version 1)
Quarter: 2012Q4

REPORT INFORMATION
  Report Type: Spontaneous
  Country: US (occurrence: None)
  Receive Date: 20121128
  Receipt Date: 20121128
  Transmission Date: 20130627
  Serious: Yes (Hospitalization)
  Sender: FDA-Public Use
  Company Number: None

PATIENT
  Age: 66 Year
  Sex: Male
  Weight: 32.99 kg

DRUGS (21)
  1. ASA [Suspect]
     Indication: CORONARY ARTERY DISEASE
     Route: 048
  2. SENNA [Concomitant]
  3. PRAVACHOL [Concomitant]
  4. MIRALAX [Concomitant]
  5. COREG [Concomitant]
  6. LASIX [Concomitant]
  7. FLOMAX [Concomitant]
  8. VESICARE [Concomitant]
  9. VITAMIN C [Concomitant]
  10. ZINC [Concomitant]
  11. ZINC SULFATE [Concomitant]
  12. MUCINEX [Concomitant]
  13. DURAGESIC [Concomitant]
  14. LIDODERM [Concomitant]
  15. ULTRAM [Concomitant]
  16. VASTEC [Concomitant]
  17. VIT D [Concomitant]
  18. MVI [Concomitant]
  19. REMERON [Concomitant]
  20. ZOLOFT [Concomitant]
  21. VENTOLIN [Concomitant]

REACTIONS (4)
  - Anaemia [None]
  - Upper gastrointestinal haemorrhage [None]
  - Gastritis erosive [None]
  - Condition aggravated [None]
